FAERS Safety Report 13006660 (Version 1)
Quarter: 2016Q4

REPORT INFORMATION
  Report Type: Spontaneous
  Country: US (occurrence: US)
  Receive Date: 20161207
  Receipt Date: 20161207
  Transmission Date: 20170207
  Serious: No
  Sender: FDA-Public Use
  Company Number: GXBR2016US002302

PATIENT
  Sex: Female

DRUGS (3)
  1. TACLONEX [Suspect]
     Active Substance: BETAMETHASONE DIPROPIONATE\CALCIPOTRIENE\CALCIPOTRIENE HYDRATE
     Indication: RASH
     Dosage: UNK DF, UNK
     Route: 065
  2. OXISTAT [Suspect]
     Active Substance: OXICONAZOLE NITRATE
     Indication: RASH
     Dosage: UNK DF, UNK
     Route: 061
  3. TACROLIMUS. [Suspect]
     Active Substance: TACROLIMUS
     Indication: RASH
     Dosage: UNK DF, UNK
     Route: 065

REACTIONS (2)
  - Rash [Not Recovered/Not Resolved]
  - Drug ineffective [Not Recovered/Not Resolved]
